FAERS Safety Report 9014188 (Version 1)
Quarter: 2013Q1

REPORT INFORMATION
  Report Type: Spontaneous
  Country: DE (occurrence: DE)
  Receive Date: 20130115
  Receipt Date: 20130115
  Transmission Date: 20140127
  Serious: Yes (Disabling)
  Sender: FDA-Public Use
  Company Number: GXKR2013DE000534

PATIENT
  Sex: Female

DRUGS (1)
  1. FLUOXETINE [Suspect]
     Dosage: 10-20 MG/DAY
     Route: 048
     Dates: start: 2007, end: 2010

REACTIONS (5)
  - Scar [Not Recovered/Not Resolved]
  - Inflammation [Not Recovered/Not Resolved]
  - Skin burning sensation [Not Recovered/Not Resolved]
  - Rosacea [Not Recovered/Not Resolved]
  - Burning sensation [None]
